FAERS Safety Report 7384979-4 (Version None)
Quarter: 2011Q1

REPORT INFORMATION
  Report Type: 
  Country: None (occurrence: None)
  Receive Date: 20110330
  Receipt Date: 20110303
  Transmission Date: 20110831
  Serious: No
  Sender: FDA-Public Use
  Company Number: US-B.I. PHARMACEUTICALS,INC./RIDGEFIELD-2011-BP-06330BP

PATIENT
  Sex: Male

DRUGS (3)
  1. AZOR [Concomitant]
     Indication: HYPERTENSION
     Dates: end: 20110225
  2. DIGOXIN [Concomitant]
     Indication: ATRIAL FIBRILLATION
     Dates: start: 20110224
  3. PRADAXA [Suspect]
     Indication: ATRIAL FIBRILLATION
     Dosage: 150 MG
     Route: 048
     Dates: start: 20110224

REACTIONS (1)
  - HYPOTENSION [None]
